FAERS Safety Report 7197710-2 (Version None)
Quarter: 2010Q4

REPORT INFORMATION
  Report Type: 
  Country: None (occurrence: None)
  Receive Date: 20101214
  Receipt Date: 20101206
  Transmission Date: 20110411
  Serious: Yes (Hospitalization, Other)
  Sender: FDA-Public Use
  Company Number: 2010SP056641

PATIENT
  Age: 28 Year
  Sex: Male

DRUGS (2)
  1. NOXAFIL [Suspect]
     Indication: PROPHYLAXIS
     Dosage: 200 MG;TID;PO
     Route: 048
     Dates: start: 20100604, end: 20100820
  2. GLEEVEC [Suspect]
     Indication: PRODUCT USED FOR UNKNOWN INDICATION
     Dosage: 100 MG;QD;PO
     Route: 048
     Dates: start: 20100412, end: 20100820

REACTIONS (2)
  - DRUG INTERACTION [None]
  - GLAUCOMA [None]
